FAERS Safety Report 9949072 (Version 1)
Quarter: 2014Q1

REPORT INFORMATION
  Report Type: Spontaneous
  Country: GB (occurrence: GB)
  Receive Date: 20140304
  Receipt Date: 20140304
  Transmission Date: 20141002
  Serious: Yes (Other)
  Sender: FDA-Public Use
  Company Number: GB-ACCORD-022124

PATIENT
  Age: 45 Year
  Sex: Male

DRUGS (13)
  1. QUETIAPINE [Suspect]
     Indication: PSYCHOTIC DISORDER
     Route: 048
     Dates: start: 20130129, end: 20140127
  2. SOLIFENACIN/SOLIFENACIN SUCCINATE [Concomitant]
  3. ZOPICLONE [Concomitant]
  4. OXYCONTIN [Concomitant]
  5. AMITRIPTYLINE [Concomitant]
  6. PREGABALIN [Concomitant]
  7. PRAMIPEXOLE/PRAMIPEXOLE DIHYDROCHLORIDE [Concomitant]
  8. SENNA ALEXANDRINA [Concomitant]
  9. DIAZEPAM [Concomitant]
  10. LANSOPRAZOLE [Concomitant]
  11. CETIRIZINE [Concomitant]
  12. DULOXETINE/DULOXETINE HYDROCHLORIDE [Concomitant]
  13. QUININE [Concomitant]

REACTIONS (2)
  - Transient ischaemic attack [Recovering/Resolving]
  - Asthenia [Not Recovered/Not Resolved]
